FAERS Safety Report 24104414 (Version 1)
Quarter: 2024Q3

REPORT INFORMATION
  Report Type: Report from Study
  Country: US (occurrence: None)
  Receive Date: 20240717
  Receipt Date: 20240717
  Transmission Date: 20241017
  Serious: Yes (Other)
  Sender: ASTRAZENECA
  Company Number: 2019SF61457

PATIENT
  Sex: Female
  Weight: 38.6 kg

DRUGS (1)
  1. NEXIUM [Suspect]
     Active Substance: ESOMEPRAZOLE MAGNESIUM
     Route: 048

REACTIONS (5)
  - Head injury [Unknown]
  - Seizure [Unknown]
  - Nervous system disorder [Unknown]
  - Systemic lupus erythematosus [Unknown]
  - Drug ineffective [Unknown]
